FAERS Safety Report 10923733 (Version 1)
Quarter: 2015Q1

REPORT INFORMATION
  Report Type: Spontaneous
  Country: JP (occurrence: JP)
  Receive Date: 20150318
  Receipt Date: 20150318
  Transmission Date: 20150721
  Serious: Yes (Other)
  Sender: FDA-Public Use
  Company Number: JP-BRISTOL-MYERS SQUIBB COMPANY-BMS-2015-015192

PATIENT
  Age: 10 Decade
  Sex: Female

DRUGS (4)
  1. ELIQUIS [Suspect]
     Active Substance: APIXABAN
     Indication: CEREBROVASCULAR ACCIDENT PROPHYLAXIS
     Dosage: 5 MG, QD
     Route: 048
     Dates: end: 20150303
  2. BAYASPIRIN [Suspect]
     Active Substance: ASPIRIN
     Indication: ATRIAL FIBRILLATION
     Dosage: 100 MG, QD
     Route: 048
     Dates: end: 20150303
  3. LYRICA [Concomitant]
     Active Substance: PREGABALIN
     Indication: SCIATICA
     Dosage: CAPSULE
     Route: 048
  4. CELECOX [Concomitant]
     Active Substance: CELECOXIB
     Indication: SCIATICA
     Dosage: UNK
     Route: 048

REACTIONS (3)
  - Epistaxis [Recovered/Resolved]
  - Cardiac failure [Unknown]
  - Wheezing [Unknown]

NARRATIVE: CASE EVENT DATE: 20150302
